FAERS Safety Report 14738979 (Version 2)
Quarter: 2018Q2

REPORT INFORMATION
  Report Type: Report from Study
  Country: JP (occurrence: JP)
  Receive Date: 20180410
  Receipt Date: 20180619
  Transmission Date: 20180711
  Serious: Yes (Other)
  Sender: FDA-Public Use
  Company Number: JP-ALXN-A201712453AA

PATIENT
  Age: 76 Year
  Sex: Male
  Weight: 58 kg

DRUGS (2)
  1. SOLIRIS [Suspect]
     Active Substance: ECULIZUMAB
     Indication: PAROXYSMAL NOCTURNAL HAEMOGLOBINURIA
     Dosage: 600 MG, QW
     Route: 042
     Dates: start: 20171005, end: 20171026
  2. SOLIRIS [Suspect]
     Active Substance: ECULIZUMAB
     Dosage: 900 MG, Q2W
     Route: 042
     Dates: start: 20171109

REACTIONS (4)
  - Haemolysis [Recovered/Resolved]
  - Renal impairment [Not Recovered/Not Resolved]
  - Inappropriate schedule of drug administration [Unknown]
  - Pyrexia [Recovered/Resolved]

NARRATIVE: CASE EVENT DATE: 20171109
